FAERS Safety Report 7877908-8 (Version None)
Quarter: 2011Q4

REPORT INFORMATION
  Report Type: 
  Country: None (occurrence: None)
  Receive Date: 20111031
  Receipt Date: 20111019
  Transmission Date: 20120403
  Serious: No
  Sender: FDA-Public Use
  Company Number: DE-GILEAD-2011-0043303

PATIENT
  Sex: Male

DRUGS (4)
  1. DIPROGENTA [Concomitant]
     Indication: ECZEMA
     Dosage: 30 DF, UNK
     Dates: start: 20110525, end: 20110727
  2. DEKRISTOL [Concomitant]
     Indication: VITAMIN D DEFICIENCY
     Dosage: 2000 DF, Q2WK
     Route: 048
     Dates: start: 20101223
  3. TRUVADA [Suspect]
     Indication: HIV INFECTION
     Dosage: 500 MG, QD
     Route: 048
     Dates: start: 20090126
  4. VIRAMUNE [Suspect]
     Indication: HIV INFECTION
     Dosage: 200 MG, BID
     Route: 048
     Dates: start: 20090126

REACTIONS (1)
  - ARTHRALGIA [None]
